FAERS Safety Report 4477343-9 (Version None)
Quarter: 2004Q4

REPORT INFORMATION
  Report Type: 
  Country: None (occurrence: None)
  Receive Date: 20041013
  Receipt Date: 20041007
  Transmission Date: 20050328
  Serious: Yes (Hospitalization)
  Sender: FDA-Public Use
  Company Number: 2004PK00619

PATIENT
  Age: 55 Year
  Sex: Male

DRUGS (11)
  1. IRESSA [Suspect]
     Indication: NON-SMALL CELL LUNG CANCER
     Dosage: 250 MG DAILY PO
     Route: 048
     Dates: start: 20040325, end: 20040328
  2. ATOSIL [Concomitant]
  3. VENLAFAXINE HCL [Concomitant]
  4. NOVALGIN [Concomitant]
  5. DURAGESIC [Concomitant]
  6. PANTOPRAZOLE SODIUM [Concomitant]
  7. DELIX [Concomitant]
  8. METOCLOPRAMIDE HYDROCHLORIDE [Concomitant]
  9. BERODUAL [Concomitant]
  10. CLEXANE [Concomitant]
  11. VALIUM [Concomitant]

REACTIONS (8)
  - CANCER PAIN [None]
  - CHEST PAIN [None]
  - DIZZINESS [None]
  - FATIGUE [None]
  - MUCOSAL INFLAMMATION [None]
  - NAUSEA [None]
  - PAIN EXACERBATED [None]
  - VOMITING [None]
